FAERS Safety Report 4518468-9 (Version None)
Quarter: 2004Q4

REPORT INFORMATION
  Report Type: 
  Country: None (occurrence: None)
  Receive Date: 20041202
  Receipt Date: 20041116
  Transmission Date: 20050328
  Serious: No
  Sender: FDA-Public Use
  Company Number: 9318

PATIENT
  Sex: 0

DRUGS (1)
  1. CARBOPLATIN [Suspect]
     Dosage: IV
     Route: 042

REACTIONS (6)
  - BLINDNESS TRANSIENT [None]
  - COMA [None]
  - DEAFNESS TRANSITORY [None]
  - DIZZINESS [None]
  - ERYTHEMA [None]
  - INFUSION RELATED REACTION [None]
